FAERS Safety Report 7378579-X (Version None)
Quarter: 2011Q1

REPORT INFORMATION
  Report Type: 
  Country: None (occurrence: None)
  Receive Date: 20110328
  Receipt Date: 20110317
  Transmission Date: 20110831
  Serious: Yes (Hospitalization)
  Sender: FDA-Public Use
  Company Number: US-ASTRAZENECA-2011SE15156

PATIENT
  Age: 54 Year
  Sex: Female
  Weight: 86.2 kg

DRUGS (14)
  1. HUMALOG [Concomitant]
  2. FUROSEMIDE [Concomitant]
  3. TRICOR [Concomitant]
  4. LOVASTATIN [Concomitant]
  5. CYMBALTA [Concomitant]
  6. MULTIVITAMIN [Concomitant]
  7. METFORMIN [Concomitant]
  8. ADVAIR DISKUS 100/50 [Concomitant]
  9. SEROQUEL [Suspect]
     Indication: BIPOLAR DISORDER
     Dosage: 900 MG TOTAL DAILY
     Route: 048
     Dates: start: 19990101, end: 20080101
  10. METOPROLOL TARTRATE [Concomitant]
  11. SEROQUEL [Suspect]
     Route: 048
  12. SEROQUEL [Suspect]
     Route: 048
  13. SEROQUEL [Suspect]
     Dosage: TOTAL DAILY: CUTTING A 100MG TABLET IN HALF
     Route: 048
  14. LISINOPRIL [Concomitant]
     Indication: BLOOD PRESSURE

REACTIONS (6)
  - PALPITATIONS [None]
  - DIABETES MELLITUS [None]
  - CARDIAC OPERATION [None]
  - WEIGHT INCREASED [None]
  - BLOOD CHOLESTEROL INCREASED [None]
  - WRONG TECHNIQUE IN DRUG USAGE PROCESS [None]
